FAERS Safety Report 25912499 (Version 1)
Quarter: 2025Q4

REPORT INFORMATION
  Report Type: Spontaneous
  Country: EU (occurrence: EU)
  Receive Date: 20251013
  Receipt Date: 20251013
  Transmission Date: 20260117
  Serious: Yes (Hospitalization)
  Sender: ROCHE
  Company Number: EU-002147023-NVSC2025ES155366

PATIENT
  Age: 38 Year
  Sex: Female

DRUGS (1)
  1. OMALIZUMAB [Suspect]
     Active Substance: OMALIZUMAB
     Indication: Urticaria chronic
     Dosage: UNK
     Route: 065

REACTIONS (4)
  - Serum sickness [Unknown]
  - Respiratory disorder [Unknown]
  - Gait inability [Unknown]
  - Asthenia [Unknown]
